FAERS Safety Report 5908950-1 (Version None)
Quarter: 2008Q4

REPORT INFORMATION
  Report Type: 
  Country: None (occurrence: None)
  Receive Date: 20081006
  Receipt Date: 20080926
  Transmission Date: 20090506
  Serious: Yes (Hospitalization)
  Sender: FDA-Public Use
  Company Number: JP-ASTRAZENECA-2008AP07601

PATIENT
  Sex: Male

DRUGS (5)
  1. NAROPIN [Suspect]
     Indication: EPIDURAL ANAESTHESIA
     Route: 008
     Dates: start: 20080911, end: 20080911
  2. NAROPIN [Suspect]
     Route: 008
     Dates: start: 20080911, end: 20080913
  3. CARBOCAIN [Suspect]
     Indication: EPIDURAL ANAESTHESIA
     Route: 008
     Dates: start: 20080911
  4. MORPHINE HCL ELIXIR [Concomitant]
     Route: 065
     Dates: start: 20080911
  5. MORPHINE HCL ELIXIR [Concomitant]
     Dosage: ADMINISTERED 6 MG FOR 3 DAYS, CONCOMITANTLY ADMINISTERED WITH ANAPEINE.
     Route: 065
     Dates: start: 20080911, end: 20080913

REACTIONS (1)
  - CAUDA EQUINA SYNDROME [None]
